FAERS Safety Report 14989982 (Version 1)
Quarter: 2018Q2

REPORT INFORMATION
  Report Type: Report from Study
  Country: AU (occurrence: AU)
  Receive Date: 20180608
  Receipt Date: 20180608
  Transmission Date: 20180711
  Serious: Yes (Life-Threatening, Hospitalization, Other)
  Sender: FDA-Public Use
  Company Number: AU-EISAI MEDICAL RESEARCH-EC-2018-036388

PATIENT
  Age: 70 Year
  Sex: Male
  Weight: 74.1 kg

DRUGS (11)
  1. LENVATINIB [Suspect]
     Active Substance: LENVATINIB
     Route: 048
     Dates: start: 20180130, end: 20180219
  2. LYSINE [Concomitant]
     Active Substance: LYSINE
  3. LOPERAMIDE [Concomitant]
     Active Substance: LOPERAMIDE
  4. EVEROLIMUS. [Suspect]
     Active Substance: EVEROLIMUS
     Route: 048
     Dates: start: 2018, end: 20180327
  5. APIXABAN [Concomitant]
     Active Substance: APIXABAN
  6. PANADOL [Concomitant]
     Active Substance: ACETAMINOPHEN
  7. LENVATINIB [Suspect]
     Active Substance: LENVATINIB
     Route: 048
     Dates: start: 20180313, end: 20180327
  8. EVEROLIMUS. [Suspect]
     Active Substance: EVEROLIMUS
     Indication: RENAL CELL CARCINOMA
     Route: 048
     Dates: start: 20171218, end: 20180219
  9. ATENOLOL. [Concomitant]
     Active Substance: ATENOLOL
  10. LENVATINIB [Suspect]
     Active Substance: LENVATINIB
     Indication: RENAL CELL CARCINOMA
     Route: 048
     Dates: start: 20171218, end: 20180129
  11. LENVATINIB [Suspect]
     Active Substance: LENVATINIB
     Route: 048
     Dates: start: 2018, end: 20180312

REACTIONS (4)
  - Confusional state [Recovering/Resolving]
  - Partial seizures [Recovered/Resolved]
  - Gastrooesophageal reflux disease [Recovered/Resolved]
  - Drug titration error [Recovered/Resolved]

NARRATIVE: CASE EVENT DATE: 20180219
